FAERS Safety Report 16575576 (Version 7)
Quarter: 2019Q3

REPORT INFORMATION
  Report Type: Report from Study
  Country: CA (occurrence: CA)
  Receive Date: 20190716
  Receipt Date: 20190903
  Transmission Date: 20191004
  Serious: Yes (Hospitalization)
  Sender: FDA-Public Use
  Company Number: CA-TAKEDA-2019TUS037106

PATIENT
  Age: 73 Year
  Sex: Female

DRUGS (6)
  1. VEDOLIZUMAB [Suspect]
     Active Substance: VEDOLIZUMAB
     Dosage: 300 MILLIGRAM
     Route: 042
  2. VEDOLIZUMAB [Suspect]
     Active Substance: VEDOLIZUMAB
     Indication: COLITIS ULCERATIVE
     Dosage: 300 MILLIGRAM
     Route: 042
     Dates: start: 20190326
  3. BISOPROLOL [Concomitant]
     Active Substance: BISOPROLOL
     Dosage: 2.5 MILLIGRAM, QD
     Route: 048
  4. MEZAVANT [Concomitant]
     Active Substance: MESALAMINE
     Dosage: 4.8 GRAM, QD
     Dates: start: 20150908
  5. BISOPROLOL [Concomitant]
     Active Substance: BISOPROLOL
     Dosage: 2.5 MILLIGRAM, BID
     Route: 048
     Dates: start: 20190319
  6. PREDNISONE. [Concomitant]
     Active Substance: PREDNISONE
     Dosage: UNK
     Dates: start: 20190206

REACTIONS (14)
  - Asthenia [Unknown]
  - Nausea [Unknown]
  - Off label use [Unknown]
  - Diarrhoea [Unknown]
  - Abdominal pain [Unknown]
  - Dizziness [Unknown]
  - Anxiety [Unknown]
  - Colitis ulcerative [Unknown]
  - Peripheral swelling [Not Recovered/Not Resolved]
  - Haematochezia [Unknown]
  - Frequent bowel movements [Unknown]
  - Mucous stools [Unknown]
  - Defaecation urgency [Unknown]
  - Dehydration [Unknown]

NARRATIVE: CASE EVENT DATE: 2019
